FAERS Safety Report 23013428 (Version 1)
Quarter: 2023Q4

REPORT INFORMATION
  Report Type: Spontaneous
  Country: US (occurrence: US)
  Receive Date: 20231001
  Receipt Date: 20231001
  Transmission Date: 20240110
  Serious: No
  Sender: FDA-Public Use
  Company Number: US-SA-SAC20230927000353

PATIENT
  Sex: Male
  Weight: 9 kg

DRUGS (2)
  1. DUPIXENT [Suspect]
     Active Substance: DUPILUMAB
     Indication: Dermatitis atopic
     Dosage: 200 MG, Q4W
     Route: 058
  2. FAMOTIDINE [Concomitant]
     Active Substance: FAMOTIDINE
     Dosage: VIAL

REACTIONS (5)
  - Dermatitis atopic [Recovered/Resolved]
  - Dry skin [Recovered/Resolved]
  - Skin irritation [Recovered/Resolved]
  - Rash macular [Recovered/Resolved]
  - Product dose omission issue [Recovered/Resolved]

NARRATIVE: CASE EVENT DATE: 20230101
